FAERS Safety Report 9224967 (Version 2)
Quarter: 2013Q2

REPORT INFORMATION
  Report Type: Spontaneous
  Country: IT (occurrence: None)
  Receive Date: 20130409
  Receipt Date: 20130423
  Transmission Date: 20140414
  Serious: Yes (Other)
  Sender: FDA-Public Use
  Company Number: 2013AP004108

PATIENT
  Age: 36 Year
  Sex: Male

DRUGS (4)
  1. QUETIAPINE (QUETIAPINE) [Suspect]
     Indication: PSYCHOTIC DISORDER
  2. CITALOPRAM HYDROBROMIDE (CITALOPRAM HYDROBROMIDE) [Suspect]
     Indication: PSYCHOTIC DISORDER
     Route: 048
  3. ALPRAZOLAM (ALPRAZOLAM) [Suspect]
     Indication: PSYCHOTIC DISORDER
     Route: 048
  4. DELORAZEPAM (DELORAZEPAM) [Suspect]
     Indication: PSYCHOTIC DISORDER
     Route: 048

REACTIONS (4)
  - Speech disorder [None]
  - Sopor [None]
  - Drug abuse [None]
  - Intentional self-injury [None]
